FAERS Safety Report 10214071 (Version 1)
Quarter: 2014Q2

REPORT INFORMATION
  Report Type: Spontaneous
  Country: US (occurrence: None)
  Receive Date: 20140602
  Receipt Date: 20140602
  Transmission Date: 20141212
  Serious: Yes (Disabling, Other)
  Sender: FDA-Public Use
  Company Number: None

PATIENT
  Age: 63 Year
  Sex: Female
  Weight: 45.36 kg

DRUGS (3)
  1. CIPROFLOXACIN [Suspect]
     Indication: INFECTION
     Route: 048
     Dates: start: 20100616, end: 20100626
  2. PHENOBARB [Concomitant]
  3. Q10 [Concomitant]

REACTIONS (3)
  - Fear [None]
  - Tendon disorder [None]
  - Pain [None]
